FAERS Safety Report 7389796-7 (Version None)
Quarter: 2011Q1

REPORT INFORMATION
  Report Type: 
  Country: None (occurrence: None)
  Receive Date: 20110323
  Receipt Date: 20110314
  Transmission Date: 20110831
  Serious: Yes (Hospitalization)
  Sender: FDA-Public Use
  Company Number: 2011SP001475

PATIENT
  Age: 46 Year
  Sex: Female

DRUGS (5)
  1. LORCET-HD [Concomitant]
  2. VITAMIN B-12 [Concomitant]
  3. RIBAVIRIN [Suspect]
     Indication: HEPATITIS C
  4. VALIUM [Concomitant]
  5. PEG-INTRON [Suspect]
     Indication: HEPATITIS C
     Dosage: 150 MCG;QW
     Dates: start: 20091204

REACTIONS (3)
  - CHILLS [None]
  - HOT FLUSH [None]
  - ABASIA [None]
